FAERS Safety Report 23698369 (Version 2)
Quarter: 2024Q3

REPORT INFORMATION
  Report Type: Spontaneous
  Country: JP (occurrence: JP)
  Receive Date: 20240402
  Receipt Date: 20240830
  Transmission Date: 20241017
  Serious: Yes (Other)
  Sender: BAYER
  Company Number: JP-BAYER-2024A045241

PATIENT
  Age: 7 Decade
  Sex: Male
  Weight: 62.2 kg

DRUGS (3)
  1. KERENDIA [Interacting]
     Active Substance: FINERENONE
     Indication: Type 2 diabetes mellitus
     Dosage: DAILY DOSE 10 MG
     Route: 048
     Dates: start: 20230707
  2. KERENDIA [Interacting]
     Active Substance: FINERENONE
     Indication: Chronic kidney disease
  3. MIROGABALIN [Interacting]
     Active Substance: MIROGABALIN
     Indication: Diabetic neuropathy
     Route: 048

REACTIONS (3)
  - Renal impairment [Recovered/Resolved]
  - Dizziness [Recovered/Resolved]
  - Drug interaction [None]

NARRATIVE: CASE EVENT DATE: 20230710
